FAERS Safety Report 14832844 (Version 3)
Quarter: 2018Q2

REPORT INFORMATION
  Report Type: Spontaneous
  Country: FR (occurrence: FR)
  Receive Date: 20180501
  Receipt Date: 20180627
  Transmission Date: 20180711
  Serious: Yes (Other)
  Sender: FDA-Public Use
  Company Number: FR-MERCK KGAA-2046900

PATIENT
  Age: 74 Year
  Sex: Female

DRUGS (3)
  1. NOVOTHYROX [Suspect]
     Active Substance: LEVOTHYROXINE SODIUM
  2. NOVOTHYROX [Suspect]
     Active Substance: LEVOTHYROXINE SODIUM
     Indication: AUTOIMMUNE THYROIDITIS
     Dates: start: 201710
  3. NOVOTHYROX [Suspect]
     Active Substance: LEVOTHYROXINE SODIUM
     Dates: end: 2018

REACTIONS (16)
  - Vertigo [None]
  - Paraesthesia [None]
  - Headache [None]
  - Tendonitis [Recovering/Resolving]
  - Hypersensitivity [Recovering/Resolving]
  - Weight increased [Recovering/Resolving]
  - Adverse event [None]
  - Vision blurred [Recovering/Resolving]
  - Hyperthyroidism [Recovered/Resolved]
  - Arthralgia [None]
  - Muscle spasms [None]
  - Abdominal pain [None]
  - Dyspnoea [None]
  - Feeling drunk [Recovering/Resolving]
  - Nausea [None]
  - Fatigue [Not Recovered/Not Resolved]

NARRATIVE: CASE EVENT DATE: 2017
